FAERS Safety Report 6768612-8 (Version None)
Quarter: 2010Q2

REPORT INFORMATION
  Report Type: 
  Country: None (occurrence: None)
  Receive Date: 20100614
  Receipt Date: 20100603
  Transmission Date: 20101027
  Serious: Yes (Hospitalization, Other)
  Sender: FDA-Public Use
  Company Number: US-ROCHE-669770

PATIENT
  Sex: Male
  Weight: 83 kg

DRUGS (16)
  1. MYCOPHENOLATE MOFETIL [Suspect]
     Route: 048
     Dates: start: 20081110, end: 20090414
  2. MYCOPHENOLATE MOFETIL [Suspect]
     Route: 048
     Dates: start: 20090415, end: 20090508
  3. MYCOPHENOLATE MOFETIL [Suspect]
     Route: 048
  4. CP-690550 [Suspect]
     Route: 048
     Dates: start: 20081111
  5. PROTONIX [Concomitant]
     Dates: start: 20081111
  6. PROTONIX [Concomitant]
     Dates: start: 20081124
  7. CALCITRIOL [Concomitant]
     Dates: start: 20081119
  8. ALBUTEROL [Concomitant]
     Dates: start: 20081111
  9. OS-CAL D [Concomitant]
     Dates: start: 20081119
  10. NORVASC [Concomitant]
     Dates: start: 20081116
  11. OMEGA [Concomitant]
     Dosage: NAME ^OMEGA-3^
     Dates: start: 20081119
  12. VALCYTE [Concomitant]
     Dates: start: 20081111
  13. LABETALOL HCL [Concomitant]
     Dates: start: 20081111
  14. LISINOPRIL [Concomitant]
     Dates: start: 20090309, end: 20090501
  15. DRISDOL [Concomitant]
     Dates: start: 20090320
  16. ACETYLSALICYLIC ACID [Concomitant]
     Dates: start: 20081115

REACTIONS (4)
  - CYTOMEGALOVIRUS OESOPHAGITIS [None]
  - CYTOMEGALOVIRUS VIRAEMIA [None]
  - LEUKOPENIA [None]
  - TRANSPLANT REJECTION [None]
